FAERS Safety Report 8601997 (Version 2)
Quarter: 2012Q4

REPORT INFORMATION
  Report Type: 
  Country: US (occurrence: US)
  Receive Date: 20120606
  Receipt Date: 20120911
  Transmission Date: 20130627
  Serious: No
  Sender: FDA-Public Use
  Company Number: US-RB-040966-12

PATIENT
  Sex: Female

DRUGS (3)
  1. SUBOXONE TABLET [Suspect]
     Dosage: Various doses
     Route: 060
     Dates: start: 2008, end: 2011
  2. SUBOXONE TABLET [Suspect]
     Indication: DRUG DEPENDENCE
     Route: 060
     Dates: start: 2011, end: 2011
  3. SUBOXONE TABLET [Suspect]
     Dosage: Various doses
     Route: 060
     Dates: start: 201107

REACTIONS (6)
  - Visual impairment [Not Recovered/Not Resolved]
  - Dizziness [Not Recovered/Not Resolved]
  - Photopsia [Not Recovered/Not Resolved]
  - Tinnitus [Not Recovered/Not Resolved]
  - Migraine [Not Recovered/Not Resolved]
  - Dysgeusia [Recovered/Resolved]
